FAERS Safety Report 5724690-6 (Version None)
Quarter: 2008Q2

REPORT INFORMATION
  Report Type: 
  Country: None (occurrence: None)
  Receive Date: 20080501
  Receipt Date: 20080423
  Transmission Date: 20081010
  Serious: Yes (Other)
  Sender: FDA-Public Use
  Company Number: US-TEVA-170663USA

PATIENT
  Age: 38 Year
  Sex: Female

DRUGS (9)
  1. PROPOFOL [Suspect]
     Indication: ANAESTHESIA
     Route: 042
  2. FENTANYL CITRATE [Suspect]
     Indication: ANAESTHESIA
     Dosage: 150?G
  3. SUXAMETHONIUM [Suspect]
     Indication: ANAESTHESIA
  4. ISOFLURANE [Suspect]
     Indication: ANAESTHESIA
  5. NITROUS OXIDE [Suspect]
     Indication: ANAESTHESIA
     Dosage: 66%
  6. MIDAZOLAM HCL [Concomitant]
  7. DOLASETRON [Concomitant]
  8. RANITIDINE [Concomitant]
  9. CEFAZOLIN [Concomitant]

REACTIONS (1)
  - DEAFNESS NEUROSENSORY [None]
